FAERS Safety Report 7809560-1 (Version None)
Quarter: 2011Q4

REPORT INFORMATION
  Report Type: 
  Country: None (occurrence: None)
  Receive Date: 20111012
  Receipt Date: 20111005
  Transmission Date: 20120403
  Serious: Yes (Death, Other)
  Sender: FDA-Public Use
  Company Number: PHHY2011NZ89271

PATIENT
  Age: 66 Year
  Sex: Male

DRUGS (8)
  1. OMEPRAZOLE [Concomitant]
  2. GENTAMICIN [Concomitant]
  3. ANTIEMETICS [Concomitant]
  4. TAMOXIFEN CITRATE [Concomitant]
     Dosage: 20 MG,
  5. VANCOMYCIN [Concomitant]
  6. HYDROCORTISONE [Concomitant]
  7. PREDNISONE [Concomitant]
     Dosage: 60 MG, UNK
     Route: 048
  8. METOPROLOL TARTRATE [Suspect]

REACTIONS (11)
  - PERITONEAL DISORDER [None]
  - DEATH [None]
  - ABDOMINAL PAIN [None]
  - EARLY SATIETY [None]
  - FATIGUE [None]
  - ABDOMINAL DISCOMFORT [None]
  - PERITONITIS BACTERIAL [None]
  - GASTRITIS [None]
  - MALAISE [None]
  - DECREASED APPETITE [None]
  - VOMITING [None]
